FAERS Safety Report 9786995 (Version 1)
Quarter: 2013Q4

REPORT INFORMATION
  Report Type: Spontaneous
  Country: US (occurrence: US)
  Receive Date: 20131227
  Receipt Date: 20131227
  Transmission Date: 20140711
  Serious: Yes (Other)
  Sender: FDA-Public Use
  Company Number: CHPA2013US018841

PATIENT
  Age: 89 Year
  Sex: Female

DRUGS (3)
  1. MAALOX UNKNOWN [Suspect]
     Indication: GASTROOESOPHAGEAL REFLUX DISEASE
     Route: 048
  2. MAALOX UNKNOWN [Suspect]
     Indication: OFF LABEL USE
  3. PANTOPRAZOL [Concomitant]

REACTIONS (2)
  - Night sweats [Recovering/Resolving]
  - Therapeutic response unexpected [Unknown]
